FAERS Safety Report 7608798-6 (Version None)
Quarter: 2011Q3

REPORT INFORMATION
  Report Type: 
  Country: None (occurrence: None)
  Receive Date: 20110714
  Receipt Date: 20110711
  Transmission Date: 20111222
  Serious: Yes (Hospitalization, Other)
  Sender: FDA-Public Use
  Company Number: SE-PFIZER INC-2011155503

PATIENT
  Age: 64 Year
  Sex: Male

DRUGS (1)
  1. TOVIAZ [Suspect]
     Indication: URINARY INCONTINENCE
     Dosage: 8 MG, 1X/DAY
     Route: 048
     Dates: start: 20110413, end: 20110426

REACTIONS (7)
  - HYPOPHAGIA [None]
  - WHEEZING [None]
  - FLUID INTAKE REDUCED [None]
  - ACIDOSIS [None]
  - URINARY RETENTION [None]
  - TACHYCARDIA [None]
  - HYPERKALAEMIA [None]
